FAERS Safety Report 4744049-8 (Version None)
Quarter: 2005Q3

REPORT INFORMATION
  Report Type: 
  Country: None (occurrence: None)
  Receive Date: 20050809
  Receipt Date: 20050801
  Transmission Date: 20060218
  Serious: No
  Sender: FDA-Public Use
  Company Number: DE-2005-009075

PATIENT
  Age: 45 Year
  Sex: Female

DRUGS (1)
  1. MIRENA [Suspect]
     Indication: MENORRHAGIA
     Dosage: 20 UG/DAY, CONT, INTRA-UTERINE
     Route: 015
     Dates: start: 20050215, end: 20050501

REACTIONS (4)
  - CONDITION AGGRAVATED [None]
  - METRORRHAGIA [None]
  - UTERINE LEIOMYOMA [None]
  - VAGINAL DISCHARGE [None]
